FAERS Safety Report 25264532 (Version 1)
Quarter: 2025Q2

REPORT INFORMATION
  Report Type: Spontaneous
  Country: US (occurrence: None)
  Receive Date: 20250502
  Receipt Date: 20250502
  Transmission Date: 20250717
  Serious: Yes (Other)
  Sender: FDA-CTU
  Company Number: None

PATIENT
  Age: 60 Year
  Sex: Female

DRUGS (2)
  1. WEGOVY [Suspect]
     Active Substance: SEMAGLUTIDE
     Indication: Overweight
  2. ZEPBOUND [Concomitant]
     Active Substance: TIRZEPATIDE

REACTIONS (1)
  - Drug dependence [None]

NARRATIVE: CASE EVENT DATE: 20250502
